FAERS Safety Report 22600158 (Version 1)
Quarter: 2023Q2

REPORT INFORMATION
  Report Type: Spontaneous
  Country: AT (occurrence: AT)
  Receive Date: 20230614
  Receipt Date: 20230614
  Transmission Date: 20230721
  Serious: Yes (Other)
  Sender: FDA-Public Use
  Company Number: AT-NORDICGR-046311

PATIENT
  Age: 37 Year
  Sex: Female

DRUGS (2)
  1. CYTOTEC [Suspect]
     Active Substance: MISOPROSTOL
     Indication: Abortion induced
     Dosage: 800 MCG WAS TAKEN AT THE PATIENTS HOME, DOSE: 200YG 2-2-0
  2. MIFEPRISTONE [Suspect]
     Active Substance: MIFEPRISTONE
     Indication: Abortion induced
     Dosage: 600 MG, WAS TAKEN AT THE PHYSICIANS OFFICE

REACTIONS (5)
  - Uterine dilation and curettage [Recovered/Resolved]
  - Induced abortion failed [Recovered/Resolved]
  - Maternal exposure during pregnancy [Unknown]
  - Off label use [Unknown]
  - Drug ineffective for unapproved indication [Unknown]
